FAERS Safety Report 8388841-X (Version None)
Quarter: 2012Q2

REPORT INFORMATION
  Report Type: 
  Country: None (occurrence: None)
  Receive Date: 20120528
  Receipt Date: 20120517
  Transmission Date: 20120825
  Serious: Yes (Hospitalization)
  Sender: FDA-Public Use
  Company Number: US-BIOGENIDEC-2012BI017881

PATIENT
  Age: 62 Year
  Sex: Male

DRUGS (2)
  1. TYSABRI [Suspect]
     Route: 042
     Dates: start: 20101118
  2. TYSABRI [Suspect]
     Indication: MULTIPLE SCLEROSIS
     Route: 042
     Dates: start: 20090814, end: 20100402

REACTIONS (1)
  - CELLULITIS [None]
